FAERS Safety Report 15986231 (Version 1)
Quarter: 2019Q1

REPORT INFORMATION
  Report Type: Spontaneous
  Country: US (occurrence: US)
  Receive Date: 20190127
  Receipt Date: 20190127
  Transmission Date: 20190418
  Serious: No
  Sender: FDA-Public Use
  Company Number: None

PATIENT
  Age: 37 Year
  Sex: Female

DRUGS (4)
  1. PROGESTERONE. [Concomitant]
     Active Substance: PROGESTERONE
  2. MIDODRINE [Concomitant]
     Active Substance: MIDODRINE
  3. NORDITROPIN [Suspect]
     Active Substance: SOMATROPIN
     Route: 058
     Dates: start: 20181019
  4. ZYRTEC [Concomitant]
     Active Substance: CETIRIZINE HYDROCHLORIDE

REACTIONS (1)
  - Wrong technique in product usage process [None]

NARRATIVE: CASE EVENT DATE: 20190127
